FAERS Safety Report 8340657-6 (Version None)
Quarter: 2012Q2

REPORT INFORMATION
  Report Type: 
  Country: None (occurrence: None)
  Receive Date: 20120507
  Receipt Date: 20120503
  Transmission Date: 20120825
  Serious: Yes (Death)
  Sender: FDA-Public Use
  Company Number: CA-ASTRAZENECA-2012SE28604

PATIENT
  Age: 52 Year
  Sex: Male

DRUGS (3)
  1. ZOMIG [Suspect]
     Indication: MIGRAINE
     Route: 048
     Dates: start: 20110101
  2. SENTINEL IN PATCH [Concomitant]
  3. SO MANY MEDICATION [Concomitant]

REACTIONS (1)
  - DEATH [None]
